FAERS Safety Report 5381581-0 (Version None)
Quarter: 2007Q2

REPORT INFORMATION
  Report Type: 
  Country: None (occurrence: None)
  Receive Date: 20070629
  Receipt Date: 20070328
  Transmission Date: 20071010
  Serious: Yes (Other)
  Sender: FDA-Public Use
  Company Number: A03200702421

PATIENT
  Sex: Female

DRUGS (1)
  1. AMBIEN CR [Suspect]
     Dosage: ORAL
     Route: 048

REACTIONS (3)
  - AGGRESSION [None]
  - AMNESIA [None]
  - HALLUCINATION, VISUAL [None]
